FAERS Safety Report 15182806 (Version 2)
Quarter: 2018Q3

REPORT INFORMATION
  Report Type: Spontaneous
  Country: US (occurrence: US)
  Receive Date: 20180723
  Receipt Date: 20180731
  Transmission Date: 20181010
  Serious: Yes (Hospitalization, Other)
  Sender: FDA-Public Use
  Company Number: US-PFIZER INC-2018289458

PATIENT
  Age: 35 Year
  Sex: Female

DRUGS (2)
  1. GEMCITABINE HYDROCHLORIDE. [Suspect]
     Active Substance: GEMCITABINE HYDROCHLORIDE
     Indication: METASTATIC RENAL CELL CARCINOMA
     Dosage: UNK, CYCLIC (AFTER ONE DOSE OF GEMCITABINE)
  2. DOXORUBICIN [Concomitant]
     Active Substance: DOXORUBICIN
     Indication: METASTATIC RENAL CELL CARCINOMA
     Dosage: UNK, CYCLIC

REACTIONS (1)
  - Pulmonary alveolar haemorrhage [Recovering/Resolving]
